FAERS Safety Report 16069304 (Version 1)
Quarter: 2019Q1

REPORT INFORMATION
  Report Type: Spontaneous
  Country: HR (occurrence: HR)
  Receive Date: 20190313
  Receipt Date: 20190313
  Transmission Date: 20190418
  Serious: Yes (Life-Threatening)
  Sender: FDA-Public Use
  Company Number: PHHY2019HR056547

PATIENT
  Age: 69 Year
  Sex: Female
  Weight: 85 kg

DRUGS (1)
  1. COSENTYX [Suspect]
     Active Substance: SECUKINUMAB
     Indication: ANKYLOSING SPONDYLITIS
     Dosage: 150 MG, 4W
     Route: 058
     Dates: start: 20180509, end: 20190213

REACTIONS (1)
  - Lung neoplasm [Unknown]

NARRATIVE: CASE EVENT DATE: 20190213
